FAERS Safety Report 4639457-X (Version None)
Quarter: 2005Q2

REPORT INFORMATION
  Report Type: 
  Country: None (occurrence: None)
  Receive Date: 20050418
  Receipt Date: 20050401
  Transmission Date: 20051028
  Serious: Yes (Hospitalization)
  Sender: FDA-Public Use
  Company Number: 106343ISR

PATIENT
  Age: 66 Year
  Sex: Female

DRUGS (2)
  1. VINCRISTINE [Suspect]
     Dates: start: 20050112, end: 20050115
  2. DOXORUBICIN HCL [Suspect]
     Dates: start: 20050112, end: 20050115

REACTIONS (3)
  - CATHETER RELATED COMPLICATION [None]
  - EXTRAVASATION [None]
  - PHLEBOTHROMBOSIS [None]
